FAERS Safety Report 15158870 (Version 4)
Quarter: 2019Q2

REPORT INFORMATION
  Report Type: Spontaneous
  Country: US (occurrence: US)
  Receive Date: 20180718
  Receipt Date: 20190524
  Transmission Date: 20190711
  Serious: Yes (Other)
  Sender: FDA-Public Use
  Company Number: US-PFIZER INC-2018287444

PATIENT
  Age: 58 Year
  Sex: Female
  Weight: 51.71 kg

DRUGS (8)
  1. ADVAIR HFA [Concomitant]
     Active Substance: FLUTICASONE PROPIONATE\SALMETEROL XINAFOATE
     Indication: CHRONIC OBSTRUCTIVE PULMONARY DISEASE
     Dosage: UNK, 1X/DAY (FLUTICASONE PROPIONATE 250UG, SALMETEROL XINAFOATE 50 UG)
  2. ARMOUR THYROID [Concomitant]
     Active Substance: THYROID, PORCINE
     Dosage: UNK, DAILY (EVERY OTHER DAY, SHE TAKES 90 MILLIGRAMS AND THE DAY IN BETWEEN, SHE TAKES)
  3. SPIRIVA [Concomitant]
     Active Substance: TIOTROPIUM BROMIDE MONOHYDRATE
     Indication: CHRONIC OBSTRUCTIVE PULMONARY DISEASE
     Dosage: 18 UG, 1X/DAY [18 MICROGRAMS ONCE PER DAY]
  4. LYRICA [Suspect]
     Active Substance: PREGABALIN
     Indication: PAIN
  5. LYRICA [Suspect]
     Active Substance: PREGABALIN
     Indication: NERVE INJURY
  6. LYRICA [Suspect]
     Active Substance: PREGABALIN
     Indication: NEUROPATHY PERIPHERAL
     Dosage: 100 MG, 3X/DAY
     Route: 048
     Dates: start: 2016
  7. LYRICA [Suspect]
     Active Substance: PREGABALIN
     Indication: NEURALGIA
  8. ARMOUR THYROID [Concomitant]
     Active Substance: THYROID, PORCINE
     Indication: HYPOTHYROIDISM
     Dosage: UNK UNK, 1X/DAY
     Route: 048

REACTIONS (3)
  - Intentional product misuse [Unknown]
  - Cyst [Recovered/Resolved]
  - Neuralgia [Unknown]

NARRATIVE: CASE EVENT DATE: 201706
